FAERS Safety Report 9918118 (Version 1)
Quarter: 2014Q1

REPORT INFORMATION
  Report Type: Spontaneous
  Country: US (occurrence: US)
  Receive Date: 20140223
  Receipt Date: 20140223
  Transmission Date: 20141002
  Serious: No
  Sender: FDA-Public Use
  Company Number: US-ALLERGAN-1306282US

PATIENT
  Sex: Female

DRUGS (1)
  1. TAZAROTENE UNK [Suspect]
     Indication: PSORIASIS
     Dosage: UNK

REACTIONS (2)
  - Pregnancy [Unknown]
  - Expired drug administered [Unknown]
